FAERS Safety Report 14564950 (Version 2)
Quarter: 2018Q1

REPORT INFORMATION
  Report Type: Report from Study
  Country: CN (occurrence: CN)
  Receive Date: 20180223
  Receipt Date: 20180226
  Transmission Date: 20180509
  Serious: Yes (Other)
  Sender: FDA-Public Use
  Company Number: CN-ROCHE-1820303

PATIENT
  Sex: Female
  Weight: 57 kg

DRUGS (2)
  1. AVASTIN [Suspect]
     Active Substance: BEVACIZUMAB
     Indication: COLORECTAL CANCER
     Route: 041
     Dates: start: 20160324
  2. AVASTIN [Suspect]
     Active Substance: BEVACIZUMAB
     Route: 041

REACTIONS (5)
  - Dizziness [Unknown]
  - Liver function test decreased [Unknown]
  - Immunodeficiency [Unknown]
  - Ascites [Unknown]
  - Memory impairment [Unknown]
